FAERS Safety Report 6014775-1 (Version None)
Quarter: 2008Q4

REPORT INFORMATION
  Report Type: 
  Country: None (occurrence: None)
  Receive Date: 20081219
  Receipt Date: 20081209
  Transmission Date: 20090506
  Serious: Yes (Other)
  Sender: FDA-Public Use
  Company Number: PHHY2008CN31234

PATIENT

DRUGS (1)
  1. MIACALCIN [Suspect]
     Dosage: UNK
     Route: 030
     Dates: start: 20081209

REACTIONS (3)
  - GASTROINTESTINAL DISORDER [None]
  - HAEMATEMESIS [None]
  - VOMITING [None]
